FAERS Safety Report 8919909 (Version 2)
Quarter: 2012Q4

REPORT INFORMATION
  Report Type: 
  Country: US (occurrence: US)
  Receive Date: 20121121
  Receipt Date: 20121203
  Transmission Date: 20130627
  Serious: Yes (Hospitalization, Other)
  Sender: FDA-Public Use
  Company Number: US-009507513-1211USA006718

PATIENT
  Age: 52 None
  Sex: Female
  Weight: 85.71 kg

DRUGS (5)
  1. VICTRELIS [Suspect]
     Indication: HEPATITIS C
     Dosage: 800 mg, tid
     Dates: end: 20121112
  2. RIBAVIRIN [Suspect]
     Dosage: UNK
     Dates: end: 20121112
  3. PEGASYS [Suspect]
     Dosage: UNK
     Dates: end: 20121112
  4. AMITRIPTYLIN [Concomitant]
  5. AMBIEN [Concomitant]

REACTIONS (4)
  - Loss of consciousness [Recovered/Resolved]
  - Dehydration [Recovered/Resolved]
  - Anaemia [Recovered/Resolved]
  - White blood cell count decreased [Recovered/Resolved]
